FAERS Safety Report 7493428-7 (Version None)
Quarter: 2011Q2

REPORT INFORMATION
  Report Type: 
  Country: None (occurrence: None)
  Receive Date: 20110520
  Receipt Date: 20110517
  Transmission Date: 20111010
  Serious: Yes (Other)
  Sender: FDA-Public Use
  Company Number: US-ABBOTT-11P-163-0708133-00

PATIENT
  Sex: Female

DRUGS (10)
  1. HUMIRA [Suspect]
     Indication: PSORIASIS
     Dates: start: 20080101
  2. UNKNOWN BLOOD PRESSURE MEDICATION [Concomitant]
     Indication: HYPERTENSION
  3. UNKNOWN ALLERGY DROP [Concomitant]
     Indication: HYPERSENSITIVITY
  4. SYNTHROID [Concomitant]
     Indication: PRODUCT USED FOR UNKNOWN INDICATION
  5. CYTOMEL [Concomitant]
     Indication: PRODUCT USED FOR UNKNOWN INDICATION
  6. CORTISONE ACETATE [Concomitant]
     Indication: PRODUCT USED FOR UNKNOWN INDICATION
     Dates: start: 20110101, end: 20110101
  7. VALIUM [Concomitant]
     Indication: PROPHYLAXIS
  8. WOMAN'S MULTIVITAMIN [Concomitant]
     Indication: PRODUCT USED FOR UNKNOWN INDICATION
  9. METHOTREXATE [Suspect]
     Indication: PRODUCT USED FOR UNKNOWN INDICATION
     Dates: start: 20100621, end: 20100915
  10. AMLODIPINE [Concomitant]
     Indication: RAYNAUD'S PHENOMENON

REACTIONS (8)
  - ALOPECIA [None]
  - EAR OPERATION [None]
  - BACK PAIN [None]
  - HEPATIC ENZYME INCREASED [None]
  - EAR TUBE INSERTION [None]
  - TOOTH EXTRACTION [None]
  - HYPERKERATOSIS [None]
  - MUSCLE SPASMS [None]
